FAERS Safety Report 6719413-8 (Version None)
Quarter: 2010Q2

REPORT INFORMATION
  Report Type: 
  Country: None (occurrence: None)
  Receive Date: 20100511
  Receipt Date: 20100428
  Transmission Date: 20101027
  Serious: Yes (Hospitalization)
  Sender: FDA-Public Use
  Company Number: DE-AMGEN-US407632

PATIENT
  Age: 77 Year
  Sex: Male

DRUGS (4)
  1. ENBREL [Suspect]
     Indication: RHEUMATOID ARTHRITIS
     Route: 058
     Dates: start: 20040324, end: 20100101
  2. FALITHROM [Concomitant]
     Dosage: UNKNOWN
  3. LOCOL [Concomitant]
     Dosage: UNKNOWN
  4. LANTAREL [Concomitant]
     Dosage: UNKNOWN

REACTIONS (4)
  - HAEMORRHAGE [None]
  - PYREXIA [None]
  - STENT PLACEMENT [None]
  - THROMBOSIS [None]
